FAERS Safety Report 21028348 (Version 1)
Quarter: 2022Q2

REPORT INFORMATION
  Report Type: Spontaneous
  Country: TN (occurrence: TN)
  Receive Date: 20220630
  Receipt Date: 20220630
  Transmission Date: 20220721
  Serious: Yes (Hospitalization, Other)
  Sender: FDA-Public Use
  Company Number: TN-VALIDUS PHARMACEUTICALS LLC-TN-VDP-2022-015599

PATIENT

DRUGS (12)
  1. CEFOTAXIME SODIUM [Suspect]
     Active Substance: CEFOTAXIME SODIUM
     Indication: Mastoiditis
     Dosage: UNK
     Route: 065
  2. CEFOTAXIME SODIUM [Suspect]
     Active Substance: CEFOTAXIME SODIUM
     Indication: Mastoid abscess
  3. CEFOTAXIME SODIUM [Suspect]
     Active Substance: CEFOTAXIME SODIUM
     Indication: Auditory meatus external erosion
  4. TEICOPLANIN [Suspect]
     Active Substance: TEICOPLANIN
     Indication: Mastoiditis
     Dosage: UNK
     Route: 065
  5. TEICOPLANIN [Suspect]
     Active Substance: TEICOPLANIN
     Indication: Subperiosteal abscess
  6. TEICOPLANIN [Suspect]
     Active Substance: TEICOPLANIN
     Indication: Auditory meatus external erosion
  7. METRONIDAZOLE [Concomitant]
     Active Substance: METRONIDAZOLE
     Indication: Mastoiditis
     Dosage: UNK
     Route: 065
  8. METRONIDAZOLE [Concomitant]
     Active Substance: METRONIDAZOLE
     Indication: Subperiosteal abscess
  9. METRONIDAZOLE [Concomitant]
     Active Substance: METRONIDAZOLE
     Indication: Auditory meatus external erosion
  10. VANCOMYCIN [Concomitant]
     Active Substance: VANCOMYCIN
     Indication: Mastoiditis
     Dosage: UNK
     Route: 065
  11. VANCOMYCIN [Concomitant]
     Active Substance: VANCOMYCIN
     Indication: Subperiosteal abscess
  12. VANCOMYCIN [Concomitant]
     Active Substance: VANCOMYCIN
     Indication: Auditory meatus external erosion

REACTIONS (1)
  - Drug reaction with eosinophilia and systemic symptoms [Recovered/Resolved]
